FAERS Safety Report 9967604 (Version 1)
Quarter: 2014Q1

REPORT INFORMATION
  Report Type: Report from Study
  Country: US (occurrence: US)
  Receive Date: 20140305
  Receipt Date: 20140305
  Transmission Date: 20141002
  Serious: No
  Sender: FDA-Public Use
  Company Number: US-ABBVIE-13P-163-1139256-00

PATIENT
  Age: 19 Year
  Sex: Male
  Weight: 81.72 kg

DRUGS (2)
  1. HUMIRA [Suspect]
     Indication: JUVENILE IDIOPATHIC ARTHRITIS
     Dates: start: 2010, end: 201210
  2. HUMIRA [Suspect]
     Dates: start: 201307

REACTIONS (2)
  - Juvenile idiopathic arthritis [Recovered/Resolved]
  - Arthralgia [Recovered/Resolved]
